FAERS Safety Report 6529641-2 (Version None)
Quarter: 2010Q1

REPORT INFORMATION
  Report Type: 
  Country: None (occurrence: None)
  Receive Date: 20100107
  Receipt Date: 20091228
  Transmission Date: 20100710
  Serious: Yes (Hospitalization, Other)
  Sender: FDA-Public Use
  Company Number: GB-GENENTECH-296462

PATIENT

DRUGS (4)
  1. RITUXIMAB [Suspect]
     Indication: LUPUS NEPHRITIS
     Dosage: 1 G, Q2W
     Route: 065
  2. MYCOPHENOLATE MOFETIL [Suspect]
     Indication: LUPUS NEPHRITIS
     Dosage: UNK
     Route: 065
  3. HYDROCORTISONE [Concomitant]
     Indication: DRUG USE FOR UNKNOWN INDICATION
     Dosage: 100 MG, UNK
  4. CHLORPHENIRAMINE [Concomitant]
     Indication: DRUG USE FOR UNKNOWN INDICATION
     Dosage: 10 MG, UNK

REACTIONS (6)
  - CELLULITIS [None]
  - LOWER RESPIRATORY TRACT INFECTION [None]
  - NEOPLASM MALIGNANT [None]
  - PERICARDIAL EFFUSION [None]
  - SYSTEMIC LUPUS ERYTHEMATOSUS [None]
  - UROSEPSIS [None]
